FAERS Safety Report 16568629 (Version 2)
Quarter: 2019Q3

REPORT INFORMATION
  Report Type: Report from Study
  Country: US (occurrence: US)
  Receive Date: 20190713
  Receipt Date: 20190724
  Transmission Date: 20191004
  Serious: No
  Sender: FDA-Public Use
  Company Number: US-009507513-1907USA002061

PATIENT
  Age: 31 Year
  Sex: Female
  Weight: 58.5 kg

DRUGS (1)
  1. IMPLANON [Suspect]
     Active Substance: ETONOGESTREL
     Dosage: 1 ROD PER 3 YEARS, STRENGTH: 68 MG
     Route: 059
     Dates: start: 20190629

REACTIONS (4)
  - Complication of device insertion [Recovered/Resolved]
  - No adverse event [Unknown]
  - Device difficult to use [Unknown]
  - Product quality issue [Unknown]

NARRATIVE: CASE EVENT DATE: 20190629
